FAERS Safety Report 7975413-1 (Version None)
Quarter: 2011Q4

REPORT INFORMATION
  Report Type: 
  Country: None (occurrence: None)
  Receive Date: 20111213
  Receipt Date: 20110927
  Transmission Date: 20120403
  Serious: No
  Sender: FDA-Public Use
  Company Number: US-AMGEN-USASP2011049959

PATIENT
  Age: 50 Year
  Sex: Female

DRUGS (3)
  1. IMURAN [Concomitant]
     Dosage: 1 MG, QD
     Dates: start: 20100101
  2. PLAQUENIL [Concomitant]
     Dosage: 1 MG, BID
     Dates: start: 20080101
  3. ENBREL [Suspect]
     Indication: RHEUMATOID ARTHRITIS
     Dosage: 50 MG, QWK
     Dates: start: 20110629

REACTIONS (5)
  - INJECTION SITE PAIN [None]
  - PAIN IN EXTREMITY [None]
  - JOINT SWELLING [None]
  - ARTHRALGIA [None]
  - OEDEMA PERIPHERAL [None]
